FAERS Safety Report 10696718 (Version 6)
Quarter: 2016Q3

REPORT INFORMATION
  Report Type: Report from Study
  Country: GB (occurrence: GB)
  Receive Date: 20150107
  Receipt Date: 20160812
  Transmission Date: 20161109
  Serious: Yes (Death, Other)
  Sender: FDA-Public Use
  Company Number: GB-ROCHE-1518080

PATIENT
  Age: 73 Year
  Sex: Female
  Weight: 87 kg

DRUGS (2)
  1. RITUXIMAB [Suspect]
     Active Substance: RITUXIMAB
     Indication: RHEUMATOID ARTHRITIS
     Route: 042
     Dates: start: 20100409, end: 20130718
  2. METHOTREXATE. [Concomitant]
     Active Substance: METHOTREXATE

REACTIONS (7)
  - Basal cell carcinoma [Recovered/Resolved]
  - Weight decreased [Unknown]
  - Liver function test abnormal [Unknown]
  - Metastases to liver [Unknown]
  - Hepatic lesion [Unknown]
  - Anaplastic thyroid cancer [Not Recovered/Not Resolved]
  - Death [Fatal]

NARRATIVE: CASE EVENT DATE: 20151208
